FAERS Safety Report 8046419-1 (Version None)
Quarter: 2012Q1

REPORT INFORMATION
  Report Type: 
  Country: None (occurrence: None)
  Receive Date: 20120113
  Receipt Date: 20120104
  Transmission Date: 20120608
  Serious: Yes (Hospitalization)
  Sender: FDA-Public Use
  Company Number: FR-ASTRAZENECA-2012SE01121

PATIENT
  Age: 22972 Day
  Sex: Male

DRUGS (1)
  1. XYLOCAINE [Suspect]
     Route: 014
     Dates: start: 20111007, end: 20111007

REACTIONS (2)
  - ERYTHEMA [None]
  - HOT FLUSH [None]
